FAERS Safety Report 8561825 (Version 2)
Quarter: 2012Q4

REPORT INFORMATION
  Report Type: 
  Country: US (occurrence: US)
  Receive Date: 20120515
  Receipt Date: 20120910
  Transmission Date: 20130627
  Serious: Yes (Death)
  Sender: FDA-Public Use
  Company Number: US-BAYER-2012-045247

PATIENT
  Age: 34 Year
  Sex: Female

DRUGS (5)
  1. YAZ [Suspect]
     Dosage: UNK
  2. YASMIN [Suspect]
     Dosage: UNK
  3. DYAZIDE [Concomitant]
  4. LEVOTHYROXIN [Concomitant]
     Dosage: 75 ?g, UNK
     Dates: start: 20100323
  5. TRIAMTERENE AND HYDROCHLOROTHIAZIDE [Concomitant]
     Dosage: 37.5 / 25
     Dates: start: 20100326

REACTIONS (6)
  - Pulmonary embolism [Fatal]
  - Injury [Fatal]
  - Pain [Fatal]
  - Anxiety [None]
  - Emotional distress [None]
  - Anhedonia [None]
